FAERS Safety Report 6776227-0 (Version None)
Quarter: 2010Q2

REPORT INFORMATION
  Report Type: 
  Country: None (occurrence: None)
  Receive Date: 20100615
  Receipt Date: 20100602
  Transmission Date: 20101027
  Serious: Yes (Other)
  Sender: FDA-Public Use
  Company Number: 2010AP001168

PATIENT
  Age: 77 Year
  Sex: Male

DRUGS (6)
  1. ALLOPURINOL [Suspect]
     Indication: TUMOUR LYSIS SYNDROME
     Dosage: PO
     Route: 048
  2. TREANDA [Suspect]
     Indication: CHRONIC LYMPHOCYTIC LEUKAEMIA
     Dosage: 177 MG;QD;IVDRP; 2 DF;QM
     Route: 041
     Dates: start: 20100428, end: 20100429
  3. RITUXAN [Suspect]
     Indication: CHRONIC LYMPHOCYTIC LEUKAEMIA
     Dosage: 985 MG;QD
     Dates: start: 20100128, end: 20100428
  4. DILTIAZEM HYDROCHLORIDE [Concomitant]
  5. DEXAMETHASONE ACETATE [Concomitant]
  6. HYDROCORTISONE ACETATE [Concomitant]

REACTIONS (1)
  - RASH GENERALISED [None]
